FAERS Safety Report 7581526-9 (Version None)
Quarter: 2011Q2

REPORT INFORMATION
  Report Type: 
  Country: None (occurrence: None)
  Receive Date: 20110629
  Receipt Date: 20110621
  Transmission Date: 20111010
  Serious: Yes (Other)
  Sender: FDA-Public Use
  Company Number: PHHY2011IT55586

PATIENT
  Sex: Male

DRUGS (3)
  1. ZOMETA [Suspect]
     Indication: METASTASES TO BONE
     Dosage: 4 MG, UNK
     Route: 042
     Dates: start: 20100101
  2. EVEROLIMUS [Concomitant]
     Dosage: UNK
     Dates: start: 20100101, end: 20110520
  3. SUTENT [Concomitant]
     Dosage: UNK
     Dates: start: 20080101, end: 20101231

REACTIONS (1)
  - OSTEONECROSIS OF JAW [None]
